FAERS Safety Report 4872793-0 (Version None)
Quarter: 2005Q4

REPORT INFORMATION
  Report Type: 
  Country: None (occurrence: None)
  Receive Date: 20051201
  Receipt Date: 20050707
  Transmission Date: 20060501
  Serious: No
  Sender: FDA-Public Use
  Company Number: 2005PV000321

PATIENT
  Age: 55 Year
  Sex: Female
  Weight: 84.8226 kg

DRUGS (15)
  1. BYETTA [Suspect]
     Indication: DIABETES MELLITUS NON-INSULIN-DEPENDENT
     Dosage: 5 MCG; BID; SC
     Route: 058
     Dates: start: 20050701
  2. CORGARD [Concomitant]
  3. PREMPRO [Concomitant]
  4. ZYRTEC [Concomitant]
  5. PANCREASE [Concomitant]
  6. MOBIC [Concomitant]
  7. GLYBURIDE [Concomitant]
  8. GLUCOPHAGE [Concomitant]
  9. NEXIUM [Concomitant]
  10. PRILOSEC [Concomitant]
  11. ASPIRIN [Concomitant]
  12. FLEXERIL [Concomitant]
  13. MULTIVITAMIN [Concomitant]
  14. CALCIUM WITH VITAMIN D [Concomitant]
  15. CIPRO [Concomitant]

REACTIONS (7)
  - ABDOMINAL DISTENSION [None]
  - ABDOMINAL PAIN UPPER [None]
  - BLOOD GLUCOSE DECREASED [None]
  - DECREASED APPETITE [None]
  - FLATULENCE [None]
  - INJECTION SITE HAEMORRHAGE [None]
  - NAUSEA [None]
